FAERS Safety Report 17724279 (Version 1)
Quarter: 2020Q2

REPORT INFORMATION
  Report Type: Spontaneous
  Country: US (occurrence: US)
  Receive Date: 20200429
  Receipt Date: 20200429
  Transmission Date: 20200714
  Serious: Yes (Hospitalization)
  Sender: FDA-Public Use
  Company Number: None

PATIENT
  Age: 61 Year
  Sex: Male

DRUGS (20)
  1. LISINOPRIL. [Concomitant]
     Active Substance: LISINOPRIL
  2. PANTOPRAZOLE [Concomitant]
     Active Substance: PANTOPRAZOLE
  3. TOPROL XL [Concomitant]
     Active Substance: METOPROLOL SUCCINATE
  4. ZOLPIDEM [Concomitant]
     Active Substance: ZOLPIDEM TARTRATE
  5. FLUTICASONE. [Concomitant]
     Active Substance: FLUTICASONE
  6. PRESERVISION [Concomitant]
     Active Substance: MINERALS\VITAMINS
  7. PROAIR HFA [Concomitant]
     Active Substance: ALBUTEROL SULFATE
  8. CLOPIDOGREL [Concomitant]
     Active Substance: CLOPIDOGREL BISULFATE
  9. LORATADINE. [Concomitant]
     Active Substance: LORATADINE
  10. STIOLTO RESPIMAT [Concomitant]
     Active Substance: OLODATEROL HYDROCHLORIDE\TIOTROPIUM BROMIDE MONOHYDRATE
  11. REPATHA [Suspect]
     Active Substance: EVOLOCUMAB
     Indication: HYPERLIPIDAEMIA
     Dosage: ?          OTHER FREQUENCY:Q TWO WEEKS;?
     Route: 058
     Dates: start: 20171027
  12. NORTRIPTYLIN [Concomitant]
     Active Substance: NORTRIPTYLINE
  13. OFLOXACIN. [Concomitant]
     Active Substance: OFLOXACIN
  14. ASPIRIN. [Concomitant]
     Active Substance: ASPIRIN
  15. METOPROLOL TARTRATE. [Concomitant]
     Active Substance: METOPROLOL TARTRATE
  16. ROSUVASTATIN. [Concomitant]
     Active Substance: ROSUVASTATIN
  17. ISOSORB [Concomitant]
  18. NITROGYCER [Concomitant]
  19. RANEXA [Concomitant]
     Active Substance: RANOLAZINE
  20. SUCRALFATE. [Concomitant]
     Active Substance: SUCRALFATE

REACTIONS (1)
  - Chest pain [None]

NARRATIVE: CASE EVENT DATE: 20200426
